FAERS Safety Report 5752116-5 (Version None)
Quarter: 2008Q2

REPORT INFORMATION
  Report Type: 
  Country: None (occurrence: None)
  Receive Date: 20080529
  Receipt Date: 20080515
  Transmission Date: 20081010
  Serious: Yes (Hospitalization)
  Sender: FDA-Public Use
  Company Number: AT-AVENTIS-200617969GDDC

PATIENT
  Age: 66 Year
  Sex: Female

DRUGS (6)
  1. LEFLUNOMIDE [Suspect]
     Indication: RHEUMATOID ARTHRITIS
     Dates: start: 20040201, end: 20040726
  2. LEFLUNOMIDE [Suspect]
     Dates: start: 20040726, end: 20040730
  3. METAMIZOL [Suspect]
     Indication: RHEUMATOID ARTHRITIS
     Dosage: DOSE: UNK
  4. ATACAND HCT [Concomitant]
     Dosage: DOSE: UNK
  5. THYREX [Concomitant]
     Dosage: DOSE: UNK
  6. PANTOLOC                           /01263201/ [Concomitant]
     Dosage: DOSE: UNK

REACTIONS (11)
  - ALANINE AMINOTRANSFERASE INCREASED [None]
  - BLOOD GLUCOSE INCREASED [None]
  - BLOOD LACTATE DEHYDROGENASE INCREASED [None]
  - GAMMA-GLUTAMYLTRANSFERASE INCREASED [None]
  - INFECTION [None]
  - LEUKOPENIA [None]
  - MUCOSAL INFLAMMATION [None]
  - MYELODYSPLASTIC SYNDROME [None]
  - PYREXIA [None]
  - SEPSIS [None]
  - THROMBOCYTOPENIA [None]
